FAERS Safety Report 7588626-8 (Version None)
Quarter: 2011Q3

REPORT INFORMATION
  Report Type: 
  Country: None (occurrence: None)
  Receive Date: 20110705
  Receipt Date: 20110629
  Transmission Date: 20111222
  Serious: Yes (Hospitalization, Other)
  Sender: FDA-Public Use
  Company Number: FR-BRISTOL-MYERS SQUIBB COMPANY-15869613

PATIENT
  Age: 85 Year
  Sex: Female

DRUGS (8)
  1. ASPIRIN [Suspect]
     Indication: CORONARY ARTERY DISEASE
     Route: 048
  2. ADANCOR [Concomitant]
  3. DISCOTRINE [Concomitant]
     Dosage: 1DF= 10 UNITS NOS
  4. CALCIUM CARBONATE [Concomitant]
  5. LASIX [Concomitant]
     Dosage: 1DF=1.5 TABLET
  6. COUMADIN [Suspect]
     Indication: ARRHYTHMIA
     Route: 048
     Dates: end: 20110519
  7. NEBIVOLOL HCL [Concomitant]
     Dosage: 1DF=1 TABLET
  8. VITAMIN D [Concomitant]

REACTIONS (5)
  - INTERNATIONAL NORMALISED RATIO INCREASED [None]
  - GASTRIC ULCER [None]
  - DIVERTICULUM [None]
  - CHEST PAIN [None]
  - MELAENA [None]
